FAERS Safety Report 11458504 (Version 2)
Quarter: 2016Q1

REPORT INFORMATION
  Report Type: Spontaneous
  Country: US (occurrence: US)
  Receive Date: 20150904
  Receipt Date: 20160304
  Transmission Date: 20160525
  Serious: Yes (Death, Other)
  Sender: FDA-Public Use
  Company Number: US-TAKEDA-2014TUS005376

PATIENT

DRUGS (8)
  1. HUMALOG [Concomitant]
     Active Substance: INSULIN LISPRO
     Dosage: 8 IU, UNK
     Dates: start: 20131220
  2. DIABETA                            /00145301/ [Concomitant]
     Dosage: UNK
     Dates: start: 2013
  3. EMPIRIN COMPOUND [Concomitant]
     Dosage: 81 MG, QD
     Dates: start: 2008
  4. ACTOS [Suspect]
     Active Substance: PIOGLITAZONE HYDROCHLORIDE
     Indication: TYPE 2 DIABETES MELLITUS
     Dosage: 45 MG, UNK
     Route: 048
     Dates: start: 20060620, end: 20130807
  5. METFORMIN [Concomitant]
     Active Substance: METFORMIN HYDROCHLORIDE
     Dosage: 1000 MG, BID
     Dates: start: 20060616, end: 201401
  6. GLUCOTROL [Concomitant]
     Active Substance: GLIPIZIDE
     Dosage: 5 MG, BID
     Dates: start: 2008
  7. JANUVIA [Concomitant]
     Active Substance: SITAGLIPTIN PHOSPHATE
     Dosage: 25 MG, UNK
     Dates: start: 20131219, end: 20140113
  8. NOVOLOG 70/30 [Concomitant]
     Indication: TYPE 2 DIABETES MELLITUS
     Dosage: 20 IU, BID
     Dates: start: 20140113

REACTIONS (2)
  - Death [Fatal]
  - Bladder cancer [Unknown]

NARRATIVE: CASE EVENT DATE: 20130724
